FAERS Safety Report 14250652 (Version 1)
Quarter: 2017Q4

REPORT INFORMATION
  Report Type: Spontaneous
  Country: US (occurrence: US)
  Receive Date: 20171205
  Receipt Date: 20171205
  Transmission Date: 20180321
  Serious: No
  Sender: FDA-Public Use
  Company Number: US-ENDO PHARMACEUTICALS INC-2017-004942

PATIENT
  Sex: Male

DRUGS (2)
  1. ALPRAZOLAM TABLETS 2 MG [Suspect]
     Active Substance: ALPRAZOLAM
     Indication: CLUSTER HEADACHE
     Dosage: 0.5 MG, TID
     Route: 065
  2. ALPRAZOLAM TABLETS 2 MG [Suspect]
     Active Substance: ALPRAZOLAM
     Dosage: 1 DF, TID
     Route: 065

REACTIONS (7)
  - Hypoaesthesia [Unknown]
  - Hot flush [Unknown]
  - Off label use [Unknown]
  - Unevaluable event [Unknown]
  - Drug intolerance [Unknown]
  - Cluster headache [Unknown]
  - Nightmare [Unknown]

NARRATIVE: CASE EVENT DATE: 2017
